FAERS Safety Report 15020625 (Version 1)
Quarter: 2018Q2

REPORT INFORMATION
  Report Type: Spontaneous
  Country: US (occurrence: US)
  Receive Date: 20180601
  Receipt Date: 20180601
  Transmission Date: 20180711
  Serious: No
  Sender: FDA-Public Use
  Company Number: None

PATIENT
  Age: 42 Year
  Sex: Male
  Weight: 99 kg

DRUGS (2)
  1. CLONAZEPAM. [Suspect]
     Active Substance: CLONAZEPAM
     Indication: PANIC DISORDER
     Dosage: ?          QUANTITY:60 DF DOSAGE FORM;?
     Route: 048
     Dates: start: 20180525, end: 20180528
  2. CELEXA [Concomitant]
     Active Substance: CITALOPRAM HYDROBROMIDE

REACTIONS (9)
  - Drug withdrawal syndrome [None]
  - Headache [None]
  - Anxiety [None]
  - Product substitution issue [None]
  - Irritability [None]
  - Therapeutic response changed [None]
  - Product physical issue [None]
  - Hypoaesthesia [None]
  - Product quality issue [None]

NARRATIVE: CASE EVENT DATE: 20180525
